FAERS Safety Report 4561865-6 (Version None)
Quarter: 2005Q1

REPORT INFORMATION
  Report Type: 
  Country: None (occurrence: None)
  Receive Date: 20050126
  Receipt Date: 20041011
  Transmission Date: 20050727
  Serious: Yes (Hospitalization)
  Sender: FDA-Public Use
  Company Number: DE-MERCK-0410DEU00329

PATIENT
  Age: 52 Year
  Sex: Female

DRUGS (5)
  1. VIOXX [Suspect]
     Indication: POLYARTHRITIS
     Route: 048
     Dates: start: 20010501
  2. ASPIRIN [Concomitant]
     Route: 065
  3. TRAMADOL HYDROCHLORIDE [Concomitant]
     Indication: PAIN
     Route: 065
  4. ESOMEPRAZOLE MAGNESIUM [Concomitant]
     Route: 065
  5. SULFASALAZINE [Concomitant]
     Route: 065

REACTIONS (7)
  - ANGINA PECTORIS [None]
  - ARRHYTHMIA [None]
  - CORONARY ARTERY DISEASE [None]
  - CORONARY ARTERY STENOSIS [None]
  - DYSPNOEA [None]
  - HYPERTENSION [None]
  - TREATMENT NONCOMPLIANCE [None]
